FAERS Safety Report 23247903 (Version 1)
Quarter: 2023Q4

REPORT INFORMATION
  Report Type: Spontaneous
  Country: US (occurrence: None)
  Receive Date: 20231130
  Receipt Date: 20231130
  Transmission Date: 20240109
  Serious: Yes (Other)
  Sender: FDA-Public Use
  Company Number: None

PATIENT
  Age: 78 Year
  Sex: Female
  Weight: 89.1 kg

DRUGS (1)
  1. GAMMAKED [Suspect]
     Active Substance: HUMAN IMMUNOGLOBULIN G
     Dosage: OTHER FREQUENCY : EVERY 4 WEEKS;?
     Route: 042
     Dates: start: 20231121, end: 20231121

REACTIONS (4)
  - Fatigue [None]
  - Abdominal discomfort [None]
  - Eye disorder [None]
  - Asthenia [None]

NARRATIVE: CASE EVENT DATE: 20231121
